FAERS Safety Report 5416524-4 (Version None)
Quarter: 2007Q3

REPORT INFORMATION
  Report Type: 
  Country: None (occurrence: None)
  Receive Date: 20070816
  Receipt Date: 20070810
  Transmission Date: 20080115
  Serious: Yes (Hospitalization)
  Sender: FDA-Public Use
  Company Number: HQWYE520910AUG07

PATIENT
  Sex: Female

DRUGS (6)
  1. AMIODARONE HCL [Suspect]
     Indication: ATRIAL FIBRILLATION
     Dosage: UNSPECIFIED
     Route: 048
  2. AMIODARONE HCL [Suspect]
     Dosage: UNSPECIFIED
     Route: 042
  3. AMLODIPINE [Concomitant]
  4. ACENOCOUMAROL [Concomitant]
  5. BISOPROLOL [Concomitant]
  6. DIOVAN HCT [Concomitant]

REACTIONS (5)
  - AFFECTIVE DISORDER [None]
  - BLOOD PRESSURE INCREASED [None]
  - COCCYDYNIA [None]
  - FATIGUE [None]
  - VISUAL ACUITY REDUCED [None]
